FAERS Safety Report 4999867-8 (Version None)
Quarter: 2006Q2

REPORT INFORMATION
  Report Type: 
  Country: None (occurrence: None)
  Receive Date: 20060510
  Receipt Date: 20060510
  Transmission Date: 20061013
  Serious: Yes (Other)
  Sender: FDA-Public Use
  Company Number: None

PATIENT
  Age: 37 Year
  Sex: Female

DRUGS (1)
  1. NYQUILL COLD AND COUGH [Suspect]
     Indication: NASOPHARYNGITIS
     Dates: start: 20060508, end: 20060508

REACTIONS (1)
  - HOT FLUSH [None]
